FAERS Safety Report 5943355-9 (Version None)
Quarter: 2008Q4

REPORT INFORMATION
  Report Type: 
  Country: None (occurrence: None)
  Receive Date: 20081104
  Receipt Date: 20081020
  Transmission Date: 20090506
  Serious: Yes (Hospitalization, Other)
  Sender: FDA-Public Use
  Company Number: 2008PL000166

PATIENT
  Age: 62 Year
  Sex: Female

DRUGS (3)
  1. ALLOPURINOL [Suspect]
     Indication: GOUT
     Dosage: ; PO
     Route: 048
  2. WARFARIN SODIUM [Concomitant]
  3. BULK LAXATIVES [Concomitant]

REACTIONS (4)
  - BREAST HAEMATOMA [None]
  - DEEP VEIN THROMBOSIS [None]
  - INTERNATIONAL NORMALISED RATIO INCREASED [None]
  - LOWER RESPIRATORY TRACT INFECTION [None]
